FAERS Safety Report 15698243 (Version 2)
Quarter: 2019Q2

REPORT INFORMATION
  Report Type: Spontaneous
  Country: US (occurrence: US)
  Receive Date: 20181207
  Receipt Date: 20190618
  Transmission Date: 20190711
  Serious: Yes (Other)
  Sender: FDA-Public Use
  Company Number: US-ASTRAZENECA-2018SF58678

PATIENT
  Age: 26836 Day
  Sex: Female
  Weight: 90.7 kg

DRUGS (17)
  1. SERTRALINE [Concomitant]
     Active Substance: SERTRALINE HYDROCHLORIDE
  2. LEVOTHYROXINE. [Concomitant]
     Active Substance: LEVOTHYROXINE
  3. SIMVASTATIN. [Concomitant]
     Active Substance: SIMVASTATIN
     Indication: BLOOD CHOLESTEROL INCREASED
  4. SYNTHROID [Concomitant]
     Active Substance: LEVOTHYROXINE SODIUM
  5. CEPHALEXIN. [Concomitant]
     Active Substance: CEPHALEXIN
  6. NEXIUM 24HR [Suspect]
     Active Substance: ESOMEPRAZOLE MAGNESIUM
     Indication: GASTROOESOPHAGEAL REFLUX DISEASE
     Route: 048
     Dates: start: 2014, end: 2016
  7. TYLENOL [Concomitant]
     Active Substance: ACETAMINOPHEN
     Indication: BACK PAIN
  8. PRILOSEC OTC [Suspect]
     Active Substance: OMEPRAZOLE MAGNESIUM
     Indication: GASTROOESOPHAGEAL REFLUX DISEASE
     Route: 048
     Dates: start: 2006, end: 2012
  9. VALSARTAN. [Concomitant]
     Active Substance: VALSARTAN
  10. BUPROPION. [Concomitant]
     Active Substance: BUPROPION
  11. TAGAMET [Concomitant]
     Active Substance: CIMETIDINE
  12. FLONASE [Concomitant]
     Active Substance: FLUTICASONE PROPIONATE
  13. PRILOSEC OTC [Suspect]
     Active Substance: OMEPRAZOLE MAGNESIUM
     Indication: GASTROOESOPHAGEAL REFLUX DISEASE
     Route: 048
     Dates: start: 2006, end: 2016
  14. METRONIDAZOLE. [Concomitant]
     Active Substance: METRONIDAZOLE
  15. ONDANSETRON [Concomitant]
     Active Substance: ONDANSETRON
  16. VENTOLIN [Concomitant]
     Active Substance: ALBUTEROL SULFATE
  17. ALPRAZOLAM. [Concomitant]
     Active Substance: ALPRAZOLAM

REACTIONS (1)
  - Chronic kidney disease [Not Recovered/Not Resolved]

NARRATIVE: CASE EVENT DATE: 20160803
